FAERS Safety Report 15323199 (Version 3)
Quarter: 2018Q4

REPORT INFORMATION
  Report Type: Report from Study
  Country: US (occurrence: US)
  Receive Date: 20180827
  Receipt Date: 20181009
  Transmission Date: 20190204
  Serious: Yes (Other)
  Sender: FDA-Public Use
  Company Number: PHEH2018US035513

PATIENT
  Age: 14 Year
  Sex: Female
  Weight: 88.8 kg

DRUGS (5)
  1. SOLU-MEDROL [Suspect]
     Active Substance: METHYLPREDNISOLONE SODIUM SUCCINATE
     Indication: MULTIPLE SCLEROSIS RELAPSE
     Dosage: UNK
     Route: 065
  2. VITAMIN B12 [Concomitant]
     Active Substance: CYANOCOBALAMIN
     Indication: PRODUCT USED FOR UNKNOWN INDICATION
     Dosage: 100 UG, QD
     Route: 048
  3. CARBAMAZEPINE. [Suspect]
     Active Substance: CARBAMAZEPINE
     Indication: PRODUCT USED FOR UNKNOWN INDICATION
     Dosage: 100 MG, BID
     Route: 048
     Dates: start: 20180831
  4. GILENYA [Suspect]
     Active Substance: FINGOLIMOD HYDROCHLORIDE
     Indication: MULTIPLE SCLEROSIS
     Dosage: 0.5 MG, QD
     Route: 048
     Dates: start: 20180221
  5. VITAMIN D3 [Concomitant]
     Active Substance: CHOLECALCIFEROL
     Indication: PRODUCT USED FOR UNKNOWN INDICATION
     Dosage: 400 IU, QD
     Route: 048

REACTIONS (31)
  - Hemiparesis [Recovering/Resolving]
  - Multiple sclerosis relapse [Unknown]
  - Pain [Recovering/Resolving]
  - Asthenia [Unknown]
  - Cognitive disorder [Recovering/Resolving]
  - Red blood cell count increased [Unknown]
  - Monocyte count increased [Unknown]
  - Dysgraphia [Unknown]
  - Dysarthria [Recovering/Resolving]
  - Panic attack [Unknown]
  - Depression [Recovered/Resolved]
  - Haemoglobin decreased [Unknown]
  - Neutrophil count increased [Unknown]
  - Depression [Not Recovered/Not Resolved]
  - Confusional state [Recovering/Resolving]
  - Ataxia [Recovering/Resolving]
  - Mean cell haemoglobin decreased [Unknown]
  - Mean cell haemoglobin concentration decreased [Unknown]
  - Blood glucose increased [Unknown]
  - Blood alkaline phosphatase decreased [Unknown]
  - Muscle spasticity [Recovering/Resolving]
  - Limb discomfort [Recovering/Resolving]
  - Lymphocyte count decreased [Unknown]
  - Sensory disturbance [Unknown]
  - Balance disorder [Unknown]
  - Gait disturbance [Unknown]
  - Mean cell volume decreased [Unknown]
  - Coordination abnormal [Recovering/Resolving]
  - Blood pressure fluctuation [Unknown]
  - Blood urea decreased [Unknown]
  - Blood creatinine decreased [Unknown]

NARRATIVE: CASE EVENT DATE: 20180605
